FAERS Safety Report 11816100 (Version 1)
Quarter: 2015Q4

REPORT INFORMATION
  Report Type: Spontaneous
  Country: PL (occurrence: PL)
  Receive Date: 20151209
  Receipt Date: 20151209
  Transmission Date: 20160305
  Serious: Yes (Other)
  Sender: FDA-Public Use
  Company Number: PHHY2015PL158369

PATIENT
  Age: 22 Year
  Sex: Female

DRUGS (4)
  1. NIFEDIPINE. [Suspect]
     Active Substance: NIFEDIPINE
     Indication: TOCOLYSIS
     Route: 065
  2. DEXAMETHASONE. [Suspect]
     Active Substance: DEXAMETHASONE
     Indication: FOETAL GROWTH RESTRICTION
     Route: 065
  3. CEFUROXIME. [Suspect]
     Active Substance: CEFUROXIME
     Dosage: 500 MG, BID
     Route: 065
  4. CEFUROXIME. [Suspect]
     Active Substance: CEFUROXIME
     Indication: BACTERIAL INFECTION
     Dosage: 1.5 G, TID
     Route: 031

REACTIONS (2)
  - Exposure during pregnancy [Unknown]
  - Premature delivery [Unknown]
